FAERS Safety Report 10416411 (Version 2)
Quarter: 2014Q3

REPORT INFORMATION
  Report Type: Spontaneous
  Country: US (occurrence: US)
  Receive Date: 20140828
  Receipt Date: 20140828
  Transmission Date: 20150326
  Serious: Yes (Hospitalization)
  Sender: FDA-Public Use
  Company Number: US-GLAXOSMITHKLINE-A0730967A

PATIENT
  Sex: Male
  Weight: 99.1 kg

DRUGS (3)
  1. AVANDIA [Suspect]
     Active Substance: ROSIGLITAZONE MALEATE
     Indication: TYPE 2 DIABETES MELLITUS
     Dosage: 4MG TWICE PER DAY
     Route: 048
     Dates: start: 2001, end: 2006
  2. LANTUS [Concomitant]
     Active Substance: INSULIN GLARGINE
  3. GLUCOTROL [Concomitant]
     Active Substance: GLIPIZIDE

REACTIONS (4)
  - Palpitations [Unknown]
  - Coronary artery disease [Unknown]
  - Myocardial infarction [Unknown]
  - Injury [Unknown]
